FAERS Safety Report 11026101 (Version 4)
Quarter: 2015Q3

REPORT INFORMATION
  Report Type: Report from Study
  Country: IT (occurrence: IT)
  Receive Date: 20150414
  Receipt Date: 20150818
  Transmission Date: 20151125
  Serious: Yes (Hospitalization, Other)
  Sender: FDA-Public Use
  Company Number: IT-ACTAVIS-2015-07633

PATIENT
  Age: 84 Year
  Sex: Male

DRUGS (5)
  1. REPAGLINIDE (UNKNOWN) [Suspect]
     Active Substance: REPAGLINIDE
     Indication: DIABETES MELLITUS
     Dosage: UNKNOWN
     Route: 048
  2. NOVOMIX [Suspect]
     Active Substance: INSULIN ASPART
     Indication: DIABETES MELLITUS
     Dosage: 20 IU, TOTAL
     Route: 058
     Dates: start: 20140606, end: 20140606
  3. ACARBOSE (UNKNOWN) [Suspect]
     Active Substance: ACARBOSE
     Indication: DIABETES MELLITUS
     Dosage: UNKNOWN
     Route: 048
  4. TRAZODONE [Concomitant]
     Active Substance: TRAZODONE HYDROCHLORIDE
     Indication: PRODUCT USED FOR UNKNOWN INDICATION
     Dosage: UNK
     Route: 065
  5. COUMADIN [Concomitant]
     Active Substance: WARFARIN SODIUM
     Indication: PRODUCT USED FOR UNKNOWN INDICATION
     Dosage: 5 MG, UNK
     Route: 065

REACTIONS (4)
  - Hypoglycaemic coma [Recovering/Resolving]
  - Hemiparesis [Recovering/Resolving]
  - Medication error [Recovering/Resolving]
  - Miosis [Recovering/Resolving]

NARRATIVE: CASE EVENT DATE: 20140606
